FAERS Safety Report 8697675 (Version 3)
Quarter: 2013Q4

REPORT INFORMATION
  Report Type: Spontaneous
  Country: US (occurrence: US)
  Receive Date: 20120801
  Receipt Date: 20131226
  Transmission Date: 20140711
  Serious: No
  Sender: FDA-Public Use
  Company Number: US-ASTRAZENECA-2010SE61480

PATIENT
  Age: 52 Year
  Sex: Female

DRUGS (4)
  1. NEXIUM [Suspect]
     Route: 048
  2. PROZAC [Concomitant]
  3. MICARDIS [Concomitant]
  4. HCTZ [Concomitant]

REACTIONS (5)
  - Ear infection [Unknown]
  - Gastrooesophageal reflux disease [Unknown]
  - Hypertension [Unknown]
  - Ulcer [Unknown]
  - Malaise [Unknown]
